FAERS Safety Report 8934097 (Version 1)
Quarter: 2012Q4

REPORT INFORMATION
  Report Type: 
  Country: US (occurrence: US)
  Receive Date: 20121129
  Receipt Date: 20121129
  Transmission Date: 20130627
  Serious: No
  Sender: FDA-Public Use
  Company Number: US-GLAXOSMITHKLINE-A0957613A

PATIENT
  Age: 58 Year
  Sex: Female

DRUGS (1)
  1. WELLBUTRIN [Suspect]
     Dosage: 200MG Unknown
     Route: 065
     Dates: start: 20061102

REACTIONS (1)
  - Drug ineffective [Not Recovered/Not Resolved]
